FAERS Safety Report 9649126 (Version 1)
Quarter: 2013Q4

REPORT INFORMATION
  Report Type: Spontaneous
  Country: US (occurrence: US)
  Receive Date: 20131028
  Receipt Date: 20131028
  Transmission Date: 20140711
  Serious: No
  Sender: FDA-Public Use
  Company Number: -SAAVPROD-POMP-1003059

PATIENT
  Sex: Female

DRUGS (1)
  1. ALGLUCOSIDASE ALFA [Suspect]
     Indication: GLYCOGEN STORAGE DISEASE TYPE II
     Dosage: 20 MG/KG, Q2W

REACTIONS (2)
  - Thyroid neoplasm [Unknown]
  - Hypothyroidism [Unknown]
